FAERS Safety Report 11688255 (Version 1)
Quarter: 2015Q4

REPORT INFORMATION
  Report Type: Spontaneous
  Country: US (occurrence: US)
  Receive Date: 20151030
  Receipt Date: 20151030
  Transmission Date: 20160304
  Serious: No
  Sender: FDA-Public Use
  Company Number: US-ASTRAZENECA-2003UW15018

PATIENT
  Age: 71 Year
  Sex: Female
  Weight: 53 kg

DRUGS (10)
  1. CRESTOR [Suspect]
     Active Substance: ROSUVASTATIN CALCIUM
     Indication: BLOOD CHOLESTEROL INCREASED
     Dosage: DAILY
     Route: 048
  2. VITAMIN D [Concomitant]
     Active Substance: CHOLECALCIFEROL
  3. CELEBREX [Suspect]
     Active Substance: CELECOXIB
     Indication: NERVE COMPRESSION
     Route: 065
     Dates: start: 20031017, end: 20031020
  4. CENTRUM SILVER ADULTS 50+ [Concomitant]
     Active Substance: MINERALS\VITAMINS
     Indication: MINERAL SUPPLEMENTATION
     Dosage: DAILY
  5. CRESTOR [Suspect]
     Active Substance: ROSUVASTATIN CALCIUM
     Indication: BLOOD CHOLESTEROL INCREASED
     Dosage: 3-4 A WEEK
     Route: 048
  6. CENTRUM SILVER ADULTS 50+ [Concomitant]
     Active Substance: MINERALS\VITAMINS
     Indication: VITAMIN SUPPLEMENTATION
     Dosage: DAILY
  7. ESOMEPRAZOLE [Suspect]
     Active Substance: ESOMEPRAZOLE
     Route: 048
  8. VITAMIN C [Concomitant]
     Active Substance: ASCORBIC ACID
  9. PRINZIDE [Concomitant]
     Active Substance: HYDROCHLOROTHIAZIDE\LISINOPRIL
     Indication: HYPERTENSION
     Dosage: 20MG AND 12 .5MG DAILY
  10. PROLIA [Concomitant]
     Active Substance: DENOSUMAB
     Indication: OSTEOPOROSIS
     Dosage: TWICE A YEAR

REACTIONS (11)
  - Irritable bowel syndrome [Unknown]
  - Frequent bowel movements [Unknown]
  - Epigastric discomfort [Recovered/Resolved]
  - Diarrhoea [Unknown]
  - Osteoporosis [Unknown]
  - Faeces discoloured [Recovering/Resolving]
  - Chromaturia [Not Recovered/Not Resolved]
  - Hypertension [Unknown]
  - Rheumatoid arthritis [Unknown]
  - Nausea [Recovered/Resolved]
  - Intentional product misuse [Unknown]

NARRATIVE: CASE EVENT DATE: 2005
